FAERS Safety Report 8466530-0 (Version None)
Quarter: 2012Q2

REPORT INFORMATION
  Report Type: 
  Country: None (occurrence: None)
  Receive Date: 20120626
  Receipt Date: 20120621
  Transmission Date: 20120825
  Serious: Yes (Hospitalization)
  Sender: FDA-Public Use
  Company Number: US-PFIZER INC-2012150470

PATIENT
  Sex: Female

DRUGS (5)
  1. KLONOPIN [Suspect]
     Dosage: 1 MG, UNK
  2. BENADRYL [Interacting]
     Indication: INSOMNIA
     Dosage: UNK
  3. GEODON [Interacting]
     Dosage: 260 MG, UNK
  4. RISPERIDONE [Interacting]
     Dosage: UNK
  5. TEMAZEPAM [Suspect]
     Dosage: UNK

REACTIONS (9)
  - DRUG INTERACTION [None]
  - MENTAL DISORDER [None]
  - INSOMNIA [None]
  - URINE OUTPUT DECREASED [None]
  - HALLUCINATION, AUDITORY [None]
  - DISTURBANCE IN ATTENTION [None]
  - ABNORMAL BEHAVIOUR [None]
  - AGGRESSION [None]
  - MEMORY IMPAIRMENT [None]
